FAERS Safety Report 7040537 (Version 7)
Quarter: 2012Q4

REPORT INFORMATION
  Report Type: Report from Study
  Country: CA (occurrence: CA)
  Receive Date: 20090702
  Receipt Date: 20121211
  Transmission Date: 20130627
  Serious: Yes (Other)
  Sender: FDA-Public Use
  Company Number: CA-ROCHE-GNE268168

PATIENT
  Age: 41 Year
  Sex: Female
  Weight: 54.48 kg

DRUGS (2)
  1. XOLAIR [Suspect]
     Indication: ASTHMA
     Dosage: 300 mg, 1/Month
     Route: 058
     Dates: start: 20080714
  2. XOLAIR [Suspect]
     Route: 058
     Dates: start: 20090422

REACTIONS (18)
  - Asthma [Recovering/Resolving]
  - Bronchitis [Unknown]
  - Cough [Not Recovered/Not Resolved]
  - Medication error [Unknown]
  - Heart rate increased [Unknown]
  - Nasal congestion [Unknown]
  - Increased upper airway secretion [Unknown]
  - Sinusitis [Unknown]
  - Haemoptysis [Unknown]
  - Asthmatic crisis [Unknown]
  - Dyspnoea [Unknown]
  - Respiratory rate increased [Unknown]
  - Body temperature decreased [Unknown]
  - Blood pressure increased [Unknown]
  - Blood pressure decreased [Unknown]
  - Contusion [Unknown]
  - Productive cough [Unknown]
  - Pharyngitis [Unknown]
